APPROVED DRUG PRODUCT: ACETAZOLAMIDE
Active Ingredient: ACETAZOLAMIDE
Strength: 500MG
Dosage Form/Route: CAPSULE, EXTENDED RELEASE;ORAL
Application: A040904 | Product #001 | TE Code: AB
Applicant: HERITAGE PHARMA LABS INC
Approved: Dec 10, 2008 | RLD: No | RS: No | Type: RX